FAERS Safety Report 13194160 (Version 3)
Quarter: 2017Q2

REPORT INFORMATION
  Report Type: Spontaneous
  Country: SA (occurrence: SA)
  Receive Date: 20170207
  Receipt Date: 20170404
  Transmission Date: 20170830
  Serious: Yes (Hospitalization)
  Sender: FDA-Public Use
  Company Number: SA-IMPAX LABORATORIES, INC-2017-IPXL-00224

PATIENT
  Age: 46 Year
  Sex: Male

DRUGS (2)
  1. LAMOTRIGINE ODT [Suspect]
     Active Substance: LAMOTRIGINE
     Indication: SUICIDE ATTEMPT
     Dosage: 6000 MG
     Route: 065
  2. FLUOXETINE [Concomitant]
     Active Substance: FLUOXETINE HYDROCHLORIDE
     Indication: PRODUCT USED FOR UNKNOWN INDICATION
     Dosage: 20 MG, DAILY
     Route: 065

REACTIONS (5)
  - Status epilepticus [Recovered/Resolved]
  - Suicide attempt [Recovered/Resolved]
  - Myoclonus [Recovered/Resolved]
  - Intentional overdose [Recovered/Resolved]
  - Muscle spasticity [Recovered/Resolved]
